FAERS Safety Report 24461689 (Version 1)
Quarter: 2024Q4

REPORT INFORMATION
  Report Type: Report from Study
  Country: US (occurrence: US)
  Receive Date: 20241018
  Receipt Date: 20241018
  Transmission Date: 20250115
  Serious: No
  Sender: ROCHE
  Company Number: US-ROCHE-3554252

PATIENT
  Age: 24 Year
  Sex: Female

DRUGS (1)
  1. RITUXAN [Suspect]
     Active Substance: RITUXIMAB
     Indication: Polymyositis
     Dosage: INFUSE 850MG INTRAVENOUSLY EVERY 6 MONTH?INFUSE 850MG INTRAVENOUSLY 0,1,2,3 WEEK
     Route: 042
     Dates: start: 20221103, end: 20231103

REACTIONS (2)
  - Off label use [Unknown]
  - No adverse event [Unknown]
